FAERS Safety Report 12987547 (Version 1)
Quarter: 2016Q4

REPORT INFORMATION
  Report Type: Spontaneous
  Country: CA (occurrence: CA)
  Receive Date: 20161130
  Receipt Date: 20161130
  Transmission Date: 20170207
  Serious: Yes (Other)
  Sender: FDA-Public Use
  Company Number: CA-BAYER-2016-225566

PATIENT
  Sex: Female

DRUGS (1)
  1. MIRENA [Suspect]
     Active Substance: LEVONORGESTREL
     Dosage: 20 MCG/24HR, CONT
     Route: 015

REACTIONS (8)
  - Attention deficit/hyperactivity disorder [None]
  - Panic attack [None]
  - Screaming [None]
  - Depressed mood [None]
  - Bipolar disorder [None]
  - Insomnia [None]
  - Anxiety [None]
  - Depression [None]
